FAERS Safety Report 9249051 (Version 1)
Quarter: 2013Q1

REPORT INFORMATION
  Report Type: Spontaneous
  Country: US (occurrence: None)
  Receive Date: 20130305
  Receipt Date: 20130305
  Transmission Date: 20140127
  Serious: Yes (Hospitalization)
  Sender: FDA-Public Use
  Company Number: 163-21880-12061694

PATIENT
  Age: 67 Year
  Sex: Female
  Weight: 66.68 kg

DRUGS (8)
  1. REVLIMID [Suspect]
     Indication: PLASMA CELL MYELOMA
     Dosage: 25 MG, DAILY X 21 DAYS, PO
     Route: 048
     Dates: start: 20120530, end: 20120610
  2. CRESTOR (ROSUVASTATIN) [Concomitant]
  3. DEXAMETHASONE (DEXAMETHASONE) [Concomitant]
  4. ASA (ACETYLSALICYLIC ACID) [Concomitant]
  5. FEOSOL(FERROUS SULFATE) [Concomitant]
  6. FOSAMAX(ALENDRONATE SODIUM) [Concomitant]
  7. PRILOSEC(OMEPRAZOLE) [Concomitant]
  8. LISINOPRIL/HCTZ(PRINZIDE) [Concomitant]

REACTIONS (1)
  - Syncope [None]
